FAERS Safety Report 5166593-4 (Version None)
Quarter: 2006Q4

REPORT INFORMATION
  Report Type: 
  Country: None (occurrence: None)
  Receive Date: 20061207
  Receipt Date: 20061129
  Transmission Date: 20070319
  Serious: Yes (Death)
  Sender: FDA-Public Use
  Company Number: FR-AVENTIS-200614218FR

PATIENT
  Age: 81 Year
  Sex: Male

DRUGS (6)
  1. LASILIX                            /00032601/ [Suspect]
     Indication: CARDIAC FAILURE
     Route: 048
     Dates: start: 20060906, end: 20060928
  2. ALLOPURINOL [Suspect]
     Indication: GOUT
     Route: 048
  3. COLCHIMAX (FRANCE) [Concomitant]
     Route: 048
     Dates: start: 20060515
  4. HEMIGOXINE [Concomitant]
     Route: 048
     Dates: start: 20060914
  5. COUMADIN [Concomitant]
     Route: 048
     Dates: start: 20060915
  6. COVERSYL                           /00790701/ [Concomitant]
     Route: 048
     Dates: start: 20060515

REACTIONS (4)
  - ACUTE RESPIRATORY DISTRESS SYNDROME [None]
  - RENAL FAILURE ACUTE [None]
  - RENAL TUBULAR NECROSIS [None]
  - STEVENS-JOHNSON SYNDROME [None]
